FAERS Safety Report 18371270 (Version 3)
Quarter: 2020Q4

REPORT INFORMATION
  Report Type: Spontaneous
  Country: JP (occurrence: JP)
  Receive Date: 20201012
  Receipt Date: 20201221
  Transmission Date: 20210114
  Serious: Yes (Hospitalization)
  Sender: FDA-Public Use
  Company Number: JP-NOVOPROD-754321

PATIENT
  Age: 45 Year
  Sex: Male

DRUGS (2)
  1. OZEMPIC [Suspect]
     Active Substance: SEMAGLUTIDE
     Indication: TYPE 2 DIABETES MELLITUS
     Dosage: 0.25 MG, QW
     Route: 058
     Dates: start: 202009, end: 202009
  2. OZEMPIC [Suspect]
     Active Substance: SEMAGLUTIDE
     Indication: WEIGHT CONTROL

REACTIONS (2)
  - Gastric ulcer [Recovering/Resolving]
  - Subcutaneous abscess [Unknown]

NARRATIVE: CASE EVENT DATE: 2020
